FAERS Safety Report 9396355 (Version 1)
Quarter: 2013Q3

REPORT INFORMATION
  Report Type: Spontaneous
  Country: US (occurrence: None)
  Receive Date: 20130708
  Receipt Date: 20130708
  Transmission Date: 20140515
  Serious: Yes (Other)
  Sender: FDA-Public Use
  Company Number: ADR-2013278099

PATIENT
  Age: 17 Year
  Sex: Female
  Weight: 47.63 kg

DRUGS (1)
  1. TOPIRAMATE [Suspect]
     Indication: MIGRAINE
     Route: 048
     Dates: start: 20130609

REACTIONS (3)
  - Vision blurred [None]
  - Eye swelling [None]
  - Ocular hyperaemia [None]
